FAERS Safety Report 21294321 (Version 1)
Quarter: 2022Q3

REPORT INFORMATION
  Report Type: Spontaneous
  Country: US (occurrence: None)
  Receive Date: 20220905
  Receipt Date: 20220905
  Transmission Date: 20221027
  Serious: No
  Sender: FDA-Public Use
  Company Number: 2022A299017

PATIENT
  Age: 860 Month
  Sex: Male

DRUGS (2)
  1. BUDESONIDE\FORMOTEROL\GLYCOPYRRONIUM [Suspect]
     Active Substance: BUDESONIDE\FORMOTEROL\GLYCOPYRRONIUM
     Indication: Chronic obstructive pulmonary disease
     Dosage: 160/9/4.8MCG AS 2 PUFFS TWICE A DAY
     Route: 055
     Dates: start: 202204
  2. SYMBICORT [Suspect]
     Active Substance: BUDESONIDE\FORMOTEROL FUMARATE DIHYDRATE
     Indication: Chronic obstructive pulmonary disease
     Dosage: 160MCG/4.5MCG AS 2 PUFFS TWICE A DAY
     Route: 055
     Dates: end: 202204

REACTIONS (5)
  - Cough [Not Recovered/Not Resolved]
  - Intentional device misuse [Unknown]
  - Device use issue [Unknown]
  - Wrong technique in device usage process [Recovered/Resolved]
  - Device delivery system issue [Unknown]

NARRATIVE: CASE EVENT DATE: 20220801
